FAERS Safety Report 13564056 (Version 3)
Quarter: 2017Q3

REPORT INFORMATION
  Report Type: Spontaneous
  Country: US (occurrence: US)
  Receive Date: 20170519
  Receipt Date: 20170710
  Transmission Date: 20171127
  Serious: No
  Sender: FDA-Public Use
  Company Number: US-GLAXOSMITHKLINE-US2017070813

PATIENT
  Age: 43 Year
  Sex: Female

DRUGS (2)
  1. ALLI [Suspect]
     Active Substance: ORLISTAT
     Indication: CONSTIPATION
     Dosage: UNK
     Route: 048
     Dates: start: 20170510
  2. ALLI [Suspect]
     Active Substance: ORLISTAT
     Indication: WEIGHT LOSS DIET
     Dosage: UNK
     Route: 048
     Dates: start: 201701

REACTIONS (5)
  - Drug ineffective [Unknown]
  - Product tampering [Unknown]
  - Product quality issue [Unknown]
  - Product use in unapproved indication [Unknown]
  - Steatorrhoea [Not Recovered/Not Resolved]
